FAERS Safety Report 8757722 (Version 3)
Quarter: 2022Q4

REPORT INFORMATION
  Report Type: Other
  Country: AT (occurrence: None)
  Receive Date: 20120828
  Receipt Date: 20221208
  Transmission Date: 20230112
  Serious: Yes (Hospitalization, Other)
  Sender: FDA-Public Use
  Company Number: AT-ROCHE-CID000000002130428

PATIENT

DRUGS (13)
  1. BEVACIZUMAB [Suspect]
     Active Substance: BEVACIZUMAB
     Indication: Brain neoplasm
     Route: 042
  2. BEVACIZUMAB [Suspect]
     Active Substance: BEVACIZUMAB
     Indication: Medulloblastoma recurrent
  3. THALIDOMIDE [Suspect]
     Active Substance: THALIDOMIDE
     Indication: Brain neoplasm
     Route: 048
  4. THALIDOMIDE [Suspect]
     Active Substance: THALIDOMIDE
     Indication: Medulloblastoma recurrent
  5. CELECOXIB [Suspect]
     Active Substance: CELECOXIB
     Indication: Brain neoplasm
     Route: 048
  6. CELECOXIB [Suspect]
     Active Substance: CELECOXIB
     Indication: Medulloblastoma recurrent
  7. FENOFIBRATE [Suspect]
     Active Substance: FENOFIBRATE
     Indication: Brain neoplasm
     Dosage: MAX: 200 MG
     Route: 048
  8. FENOFIBRATE [Suspect]
     Active Substance: FENOFIBRATE
     Indication: Medulloblastoma recurrent
  9. ETOPOSIDE [Suspect]
     Active Substance: ETOPOSIDE
     Indication: Brain neoplasm
     Dosage: 30-50 MG/M2 DAILY
     Route: 048
  10. ETOPOSIDE [Suspect]
     Active Substance: ETOPOSIDE
     Indication: Medulloblastoma recurrent
     Dosage: { 1YEARS 0.25 MG DAILY FOR 5 DAYS
  11. CYCLOPHOSPHAMIDE [Suspect]
     Active Substance: CYCLOPHOSPHAMIDE
     Indication: Brain neoplasm
     Dosage: MAX. 100 MG
     Route: 065
  12. CYCLOPHOSPHAMIDE [Suspect]
     Active Substance: CYCLOPHOSPHAMIDE
     Indication: Medulloblastoma recurrent
  13. CYTARABINE [Suspect]
     Active Substance: CYTARABINE
     Indication: Medulloblastoma recurrent
     Dosage: 0-3 YEARS 25 MG, 3-9 YEARS 35 MG, }9 YEARS 50 MG

REACTIONS (6)
  - Pneumonia [Unknown]
  - Neutropenia [Unknown]
  - Lymphopenia [Unknown]
  - Proteinuria [Unknown]
  - Deep vein thrombosis [Unknown]
  - Hypothyroidism [Unknown]
